FAERS Safety Report 24066340 (Version 6)
Quarter: 2024Q3

REPORT INFORMATION
  Report Type: Spontaneous
  Country: US (occurrence: US)
  Receive Date: 20240709
  Receipt Date: 20240911
  Transmission Date: 20241017
  Serious: Yes (Hospitalization, Other)
  Sender: ELI LILLY AND CO
  Company Number: US-ELI_LILLY_AND_COMPANY-US202407000832

PATIENT
  Age: 44 Year
  Sex: Female

DRUGS (4)
  1. ADCIRCA [Suspect]
     Active Substance: TADALAFIL
     Indication: Pulmonary arterial hypertension
     Dosage: 40 MG, DAILY
     Route: 048
     Dates: start: 202405
  2. REMODULIN [Suspect]
     Active Substance: TREPROSTINIL
     Indication: Pulmonary arterial hypertension
     Dosage: 20 NG/KG/MIN, CONTINUOUS
     Route: 042
     Dates: start: 202405
  3. REMODULIN [Suspect]
     Active Substance: TREPROSTINIL
     Dosage: 22 NG/KG/MIN, CONTINUOUS
     Route: 042
     Dates: start: 202405
  4. OPSUMIT [Concomitant]
     Active Substance: MACITENTAN
     Indication: Product used for unknown indication
     Dosage: UNK UNK, UNKNOWN
     Route: 065

REACTIONS (7)
  - COVID-19 [Unknown]
  - Infusion site thrombosis [Unknown]
  - Device related infection [Unknown]
  - Staphylococcal infection [Unknown]
  - Rash [Unknown]
  - Application site vesicles [Unknown]
  - Vision blurred [Not Recovered/Not Resolved]

NARRATIVE: CASE EVENT DATE: 20240801
